FAERS Safety Report 18670179 (Version 1)
Quarter: 2020Q4

REPORT INFORMATION
  Report Type: Spontaneous
  Country: GB (occurrence: GB)
  Receive Date: 20201228
  Receipt Date: 20201228
  Transmission Date: 20210114
  Serious: Yes (Other)
  Sender: FDA-Public Use
  Company Number: GB-PFIZER INC-2020507631

PATIENT
  Age: 49 Year
  Sex: Male
  Weight: 107 kg

DRUGS (4)
  1. FOSTAIR [Concomitant]
     Active Substance: BECLOMETHASONE\FORMOTEROL
     Dosage: 4 DOSAGE FORMS (PUFFS) ONCE A DAY
     Route: 055
     Dates: start: 20200628
  2. IBUPROFEN. [Suspect]
     Active Substance: IBUPROFEN
     Dosage: 400 MG
     Dates: start: 20201208
  3. OMEPRAZOLE. [Concomitant]
     Active Substance: OMEPRAZOLE
     Dosage: UNK
     Route: 048
     Dates: start: 20200628
  4. SALBUTAMOL [Concomitant]
     Active Substance: ALBUTEROL
     Dosage: 2 DOSAGE FORMS AS NECESSARY
     Route: 055
     Dates: start: 20200628

REACTIONS (1)
  - Gastritis [Recovering/Resolving]

NARRATIVE: CASE EVENT DATE: 20201208
